FAERS Safety Report 5508001-7 (Version None)
Quarter: 2007Q4

REPORT INFORMATION
  Report Type: 
  Country: None (occurrence: None)
  Receive Date: 20071106
  Receipt Date: 20071024
  Transmission Date: 20080405
  Serious: Yes (Other)
  Sender: FDA-Public Use
  Company Number: US-PFIZER INC-2007080691

PATIENT
  Sex: Male

DRUGS (12)
  1. CHANTIX [Suspect]
     Indication: EX-SMOKER
  2. CHANTIX [Interacting]
     Indication: CHRONIC OBSTRUCTIVE PULMONARY DISEASE
  3. MS CONTIN [Interacting]
  4. LITHIUM [Concomitant]
  5. EFFEXOR [Concomitant]
  6. BACLOFEN [Concomitant]
  7. VALIUM [Concomitant]
  8. BUSPAR [Concomitant]
  9. TRAZODONE HCL [Concomitant]
  10. ACIPHEX [Concomitant]
  11. ALBUTEROL [Concomitant]
  12. SPIRIVA [Concomitant]

REACTIONS (5)
  - DRUG INTERACTION [None]
  - DRY MOUTH [None]
  - INSOMNIA [None]
  - NASAL CONGESTION [None]
  - POLLAKIURIA [None]
